FAERS Safety Report 12763951 (Version 1)
Quarter: 2016Q3

REPORT INFORMATION
  Report Type: Spontaneous
  Country: US (occurrence: US)
  Receive Date: 20160920
  Receipt Date: 20160920
  Transmission Date: 20161109
  Serious: No
  Sender: FDA-Public Use
  Company Number: US-LPDUSPRD-20150788

PATIENT
  Age: 71 Year
  Sex: Male

DRUGS (1)
  1. ACETYLCYSTEINE SOLUTION, USP (014-10) [Suspect]
     Active Substance: ACETYLCYSTEINE
     Dosage: 600 MG
     Route: 042
     Dates: start: 201510, end: 201510

REACTIONS (2)
  - Incorrect route of drug administration [Unknown]
  - No adverse event [Unknown]

NARRATIVE: CASE EVENT DATE: 201510
